FAERS Safety Report 8442866-4 (Version None)
Quarter: 2012Q2

REPORT INFORMATION
  Report Type: 
  Country: None (occurrence: None)
  Receive Date: 20120615
  Receipt Date: 20120612
  Transmission Date: 20120825
  Serious: Yes (Other)
  Sender: FDA-Public Use
  Company Number: US-JNJFOC-20120606255

PATIENT
  Sex: Female
  Weight: 69.4 kg

DRUGS (3)
  1. SIMPONI [Suspect]
     Indication: RHEUMATOID ARTHRITIS
     Route: 058
     Dates: start: 20110901, end: 20120210
  2. PREDNISONE [Concomitant]
     Indication: RHEUMATOID ARTHRITIS
     Route: 048
  3. ARAVA [Concomitant]
     Indication: RHEUMATOID ARTHRITIS
     Route: 048

REACTIONS (7)
  - DENTAL CARIES [None]
  - BLOOD COUNT ABNORMAL [None]
  - TOOTH INFECTION [None]
  - HEART RATE INCREASED [None]
  - NERVOUSNESS [None]
  - TOOTH FRACTURE [None]
  - ABNORMAL LOSS OF WEIGHT [None]
